FAERS Safety Report 9063237 (Version 2)
Quarter: 2013Q1

REPORT INFORMATION
  Report Type: Spontaneous
  Country: JP (occurrence: JP)
  Receive Date: 20130213
  Receipt Date: 20130221
  Transmission Date: 20140127
  Serious: Yes (Other)
  Sender: FDA-Public Use
  Company Number: JP-GLAXOSMITHKLINE-B0849108A

PATIENT
  Age: 38 None
  Sex: Female

DRUGS (7)
  1. LAMICTAL [Suspect]
     Indication: AFFECTIVE DISORDER
     Dosage: 25MG TWICE PER DAY
     Route: 048
     Dates: end: 201211
  2. CYMBALTA [Concomitant]
     Indication: DEPRESSION
     Dosage: 20MG THREE TIMES PER DAY
     Route: 048
  3. CONSTAN [Concomitant]
     Indication: ANXIETY DISORDER
     Route: 048
  4. MEDEPOLIN [Concomitant]
     Dosage: .4MG THREE TIMES PER DAY
     Route: 048
  5. RESTAS [Concomitant]
     Dosage: 2MG PER DAY
     Route: 048
  6. DOMPERIDONE [Concomitant]
     Dosage: 10MG THREE TIMES PER DAY
     Route: 048
  7. CABAGIN-U [Concomitant]
     Dosage: 2.5MG THREE TIMES PER DAY
     Route: 048

REACTIONS (5)
  - Erythema multiforme [Recovered/Resolved]
  - Drug eruption [Recovered/Resolved]
  - Stomatitis [Unknown]
  - Metrorrhagia [Recovered/Resolved]
  - Skin disorder [Unknown]
